FAERS Safety Report 13243515 (Version 1)
Quarter: 2017Q1

REPORT INFORMATION
  Report Type: Spontaneous
  Country: US (occurrence: US)
  Receive Date: 20170217
  Receipt Date: 20170217
  Transmission Date: 20170428
  Serious: No
  Sender: FDA-Public Use
  Company Number: None

PATIENT
  Age: 45 Year
  Sex: Male
  Weight: 115 kg

DRUGS (2)
  1. HEPARIN [Suspect]
     Active Substance: HEPARIN SODIUM
     Indication: CARDIOPULMONARY BYPASS
     Dosage: DOSE - 40,000 UNITS
     Route: 042
     Dates: start: 20170112
  2. HEPARIN [Suspect]
     Active Substance: HEPARIN SODIUM
     Indication: CARDIOPULMONARY BYPASS
     Dosage: DOSE - 20000 UNITS (DIFFERENT LOT #)
     Route: 042
     Dates: start: 20170112

REACTIONS (2)
  - Product quality issue [None]
  - Product measured potency issue [None]

NARRATIVE: CASE EVENT DATE: 20170112
